FAERS Safety Report 7490533-6 (Version None)
Quarter: 2011Q2

REPORT INFORMATION
  Report Type: 
  Country: None (occurrence: None)
  Receive Date: 20110519
  Receipt Date: 20110511
  Transmission Date: 20111010
  Serious: Yes (Hospitalization)
  Sender: FDA-Public Use
  Company Number: FR-SANOFI-AVENTIS-2011SA030279

PATIENT
  Age: 69 Year
  Sex: Female

DRUGS (4)
  1. KALEORID [Concomitant]
     Route: 048
     Dates: start: 20110306, end: 20110310
  2. LASIX [Suspect]
     Route: 048
     Dates: start: 20110307, end: 20110313
  3. ARIXTRA [Suspect]
     Route: 058
     Dates: start: 20110304, end: 20110309
  4. CANDESARTAN CILEXETIL [Concomitant]
     Route: 048
     Dates: start: 20110307

REACTIONS (2)
  - HAEMATOMA [None]
  - RED BLOOD CELL COUNT DECREASED [None]
